FAERS Safety Report 4999269-4 (Version None)
Quarter: 2006Q2

REPORT INFORMATION
  Report Type: 
  Country: None (occurrence: None)
  Receive Date: 20060510
  Receipt Date: 20060510
  Transmission Date: 20061013
  Serious: Yes (Other)
  Sender: FDA-Public Use
  Company Number: None

PATIENT
  Age: 39 Year
  Sex: Male
  Weight: 83.9154 kg

DRUGS (2)
  1. BUPRENEX [Suspect]
     Indication: PAIN MANAGEMENT
     Dosage: 3X A DAY IM
     Route: 030
     Dates: start: 19981218, end: 20040120
  2. SUBOXONE [Suspect]
     Indication: DETOXIFICATION
     Dosage: 2X A DAY SL
     Route: 060
     Dates: start: 20040120, end: 20050713

REACTIONS (2)
  - DRUG EFFECT DECREASED [None]
  - DRUG WITHDRAWAL SYNDROME [None]
